FAERS Safety Report 8001239-9 (Version None)
Quarter: 2011Q4

REPORT INFORMATION
  Report Type: 
  Country: None (occurrence: None)
  Receive Date: 20111222
  Receipt Date: 20111215
  Transmission Date: 20120403
  Serious: Yes (Disabling)
  Sender: FDA-Public Use
  Company Number: IT-ELI_LILLY_AND_COMPANY-IT201112004507

PATIENT
  Sex: Female

DRUGS (7)
  1. EFFIENT [Suspect]
     Indication: MYOCARDIAL INFARCTION
     Dosage: 60 MG, UNK
     Route: 048
     Dates: start: 20111203, end: 20111203
  2. HEPARIN [Concomitant]
     Dosage: 5000 IU/DAY
     Route: 042
     Dates: start: 20111203, end: 20111203
  3. FLECTADOL [Concomitant]
     Indication: ACUTE MYOCARDIAL INFARCTION
     Dosage: 500 MG/TOTAL
     Route: 042
     Dates: start: 20111203, end: 20111203
  4. ROSUVASTATIN CALCIUM [Concomitant]
     Dosage: 40 MG
  5. ESOPRAL [Concomitant]
  6. MODURETIC 5-50 [Concomitant]
  7. LEVOTHYROXINE SODIUM [Concomitant]

REACTIONS (3)
  - EXTRADURAL HAEMATOMA [None]
  - BONE MARROW DISORDER [None]
  - PARAPLEGIA [None]
